FAERS Safety Report 10993996 (Version 1)
Quarter: 2015Q2

REPORT INFORMATION
  Report Type: Spontaneous
  Country: US (occurrence: None)
  Receive Date: 20150406
  Receipt Date: 20150406
  Transmission Date: 20150821
  Serious: Yes (Hospitalization)
  Sender: FDA-Public Use
  Company Number: None

PATIENT
  Age: 60 Year
  Sex: Female
  Weight: 82 kg

DRUGS (1)
  1. ATORVASTATIN [Suspect]
     Active Substance: ATORVASTATIN
     Indication: HYPERLIPIDAEMIA
     Dosage: MG PO
     Route: 048
     Dates: start: 20120516, end: 20120907

REACTIONS (1)
  - Unevaluable event [None]

NARRATIVE: CASE EVENT DATE: 20120907
